FAERS Safety Report 9321481 (Version 3)
Quarter: 2013Q3

REPORT INFORMATION
  Report Type: Report from Study
  Country: CA (occurrence: CA)
  Receive Date: 20130531
  Receipt Date: 20130819
  Transmission Date: 20140515
  Serious: Yes (Hospitalization, Other)
  Sender: FDA-Public Use
  Company Number: PHHY2013CA054442

PATIENT
  Sex: Female

DRUGS (1)
  1. AFINITOR [Suspect]
     Indication: GLUCAGONOMA
     Dosage: 10 MG, UNK
     Route: 048
     Dates: start: 20130221, end: 201306

REACTIONS (8)
  - PO2 decreased [Unknown]
  - Dehydration [Unknown]
  - Blood glucose decreased [Unknown]
  - Diarrhoea [Unknown]
  - Dyspnoea exertional [Unknown]
  - Lung infection [Unknown]
  - Heart rate increased [Unknown]
  - Stomatitis [Unknown]
